FAERS Safety Report 17013071 (Version 1)
Quarter: 2019Q4

REPORT INFORMATION
  Report Type: Spontaneous
  Country: US (occurrence: US)
  Receive Date: 20191001
  Receipt Date: 20191001
  Transmission Date: 20200122
  Serious: No
  Sender: FDA-Public Use
  Company Number: None

PATIENT
  Age: 52 Year
  Sex: Male
  Weight: 74.39 kg

DRUGS (2)
  1. DAPSONE. [Suspect]
     Active Substance: DAPSONE
     Indication: ACNE
     Dosage: ?          OTHER DOSE:SMALL AMT;?
     Route: 061
     Dates: start: 2015, end: 2015
  2. ACZONE [Suspect]
     Active Substance: DAPSONE
     Dosage: ?          OTHER DOSE:SMALL AMT;?
     Route: 061
     Dates: start: 2015, end: 2015

REACTIONS (3)
  - Skin discolouration [None]
  - Blister [None]
  - Hypersensitivity [None]
